FAERS Safety Report 24607720 (Version 2)
Quarter: 2025Q3

REPORT INFORMATION
  Report Type: Spontaneous
  Country: JP (occurrence: JP)
  Receive Date: 20241112
  Receipt Date: 20250803
  Transmission Date: 20251021
  Serious: Yes (Hospitalization, Other)
  Sender: ALEXION PHARMACEUTICALS
  Company Number: JP-ASTRAZENECA-240064084_013120_P_1

PATIENT
  Age: 64 Year
  Sex: Male
  Weight: 45 kg

DRUGS (24)
  1. IMFINZI [Suspect]
     Active Substance: DURVALUMAB
     Indication: Non-small cell lung cancer
     Dosage: 1500 MILLIGRAM, Q4W
     Dates: start: 20240626, end: 20240723
  2. IMJUDO [Suspect]
     Active Substance: TREMELIMUMAB\TREMELIMUMAB-ACTL
     Indication: Non-small cell lung cancer
     Dosage: 75 MILLIGRAM, Q4W
     Dates: start: 20240626, end: 20240723
  3. PEMETREXED [Concomitant]
     Active Substance: PEMETREXED
     Indication: Non-small cell lung cancer
     Dates: start: 20240626, end: 20240723
  4. CARBOPLATIN [Concomitant]
     Active Substance: CARBOPLATIN
     Indication: Non-small cell lung cancer
     Dates: start: 20240626, end: 20240723
  5. APREPITANT [Concomitant]
     Active Substance: APREPITANT
     Dates: start: 20240626, end: 20240723
  6. APREPITANT [Concomitant]
     Active Substance: APREPITANT
     Dates: start: 20240627, end: 20240728
  7. PALONOSETRON [Concomitant]
     Active Substance: PALONOSETRON
     Dates: start: 20240626, end: 20240723
  8. DEXAMETHASONE SODIUM PHOSPHATE [Concomitant]
     Active Substance: DEXAMETHASONE SODIUM PHOSPHATE
     Dates: start: 20240626, end: 20240723
  9. DENOSUMAB [Concomitant]
     Active Substance: DENOSUMAB
  10. DEXTROMETHORPHAN HYDROBROMIDE [Concomitant]
     Active Substance: DEXTROMETHORPHAN HYDROBROMIDE
  11. DEXTROMETHORPHAN HYDROBROMIDE [Concomitant]
     Active Substance: DEXTROMETHORPHAN HYDROBROMIDE
  12. FOLIC ACID [Concomitant]
     Active Substance: FOLIC ACID
  13. FOLIC ACID [Concomitant]
     Active Substance: FOLIC ACID
  14. LANSOPRAZOLE [Concomitant]
     Active Substance: LANSOPRAZOLE
  15. DIETARY SUPPLEMENT\PROBIOTICS [Concomitant]
     Active Substance: DIETARY SUPPLEMENT\PROBIOTICS NOS
  16. DIETARY SUPPLEMENT\PROBIOTICS [Concomitant]
     Active Substance: DIETARY SUPPLEMENT\PROBIOTICS NOS
  17. AMLODIPINE BESYLATE [Concomitant]
     Active Substance: AMLODIPINE BESYLATE
  18. AMITIZA [Concomitant]
     Active Substance: LUBIPROSTONE
  19. AMITIZA [Concomitant]
     Active Substance: LUBIPROSTONE
  20. Hemoporison [Concomitant]
  21. LOXOPROFEN [Concomitant]
     Active Substance: LOXOPROFEN
  22. ACETAMINOPHEN [Concomitant]
     Active Substance: ACETAMINOPHEN
  23. ACETAMINOPHEN [Concomitant]
     Active Substance: ACETAMINOPHEN
  24. Spiolto respimate [Concomitant]

REACTIONS (4)
  - Meningitis [Recovered/Resolved]
  - Decreased appetite [Not Recovered/Not Resolved]
  - Eastern Cooperative Oncology Group performance status worsened [Recovering/Resolving]
  - Weight decreased [Unknown]
